FAERS Safety Report 5122185-4 (Version None)
Quarter: 2006Q4

REPORT INFORMATION
  Report Type: 
  Country: None (occurrence: None)
  Receive Date: 20061006
  Receipt Date: 20060926
  Transmission Date: 20070319
  Serious: Yes (Hospitalization, Disabling)
  Sender: FDA-Public Use
  Company Number: DE-ABBOTT-06P-062-0345056-00

PATIENT
  Sex: Male

DRUGS (10)
  1. PEDIATHROCIN TROCKENSAFT [Suspect]
     Indication: PNEUMONIA
     Route: 048
     Dates: start: 20051112, end: 20051118
  2. ZITHROMAX [Suspect]
     Indication: PNEUMONIA
     Route: 048
     Dates: start: 20050919, end: 20050921
  3. ORELOX JUNIOR [Concomitant]
     Indication: PNEUMONIA
     Route: 048
     Dates: start: 20051114, end: 20051118
  4. ORELOX JUNIOR [Concomitant]
  5. CEFUROXIME SODIUM [Concomitant]
     Indication: PNEUMONIA
     Route: 042
     Dates: start: 20051114, end: 20051118
  6. ACC AKUT [Concomitant]
     Indication: INFECTION
     Route: 048
     Dates: start: 20051001, end: 20051001
  7. ACETYLCYSTEINE [Concomitant]
     Indication: INFECTION
     Route: 048
     Dates: start: 20051101, end: 20051101
  8. BUDESONIDE [Concomitant]
     Indication: INFECTION
     Route: 055
  9. SALBUTAMOL [Concomitant]
     Indication: INFECTION
     Route: 055
  10. IPRATROPIUM BROMIDE [Concomitant]
     Indication: INFECTION
     Route: 055

REACTIONS (7)
  - BRAIN CONTUSION [None]
  - CONTUSION [None]
  - DEAFNESS NEUROSENSORY [None]
  - FALL [None]
  - HYPOACUSIS [None]
  - INFECTION [None]
  - SPEECH DISORDER DEVELOPMENTAL [None]
